FAERS Safety Report 10776484 (Version 1)
Quarter: 2015Q1

REPORT INFORMATION
  Report Type: Spontaneous
  Country: US (occurrence: US)
  Receive Date: 20150209
  Receipt Date: 20150209
  Transmission Date: 20150721
  Serious: No
  Sender: FDA-Public Use
  Company Number: US-GILEAD-2013-0084603

PATIENT
  Age: 74 Year
  Sex: Male

DRUGS (2)
  1. RANEXA [Suspect]
     Active Substance: RANOLAZINE
     Dosage: UNK
     Dates: start: 201309
  2. RANEXA [Suspect]
     Active Substance: RANOLAZINE
     Indication: ANGINA PECTORIS
     Dosage: 1000 MG, UNK
     Route: 048
     Dates: end: 201309

REACTIONS (5)
  - Muscle spasms [Unknown]
  - Headache [Unknown]
  - Vision blurred [Unknown]
  - Pain in extremity [Unknown]
  - Abasia [Unknown]

NARRATIVE: CASE EVENT DATE: 201308
